FAERS Safety Report 7048667-6 (Version None)
Quarter: 2010Q4

REPORT INFORMATION
  Report Type: 
  Country: None (occurrence: None)
  Receive Date: 20101018
  Receipt Date: 20100914
  Transmission Date: 20110411
  Serious: No
  Sender: FDA-Public Use
  Company Number: US-BAYER-201039719GPV

PATIENT
  Age: 55 Year
  Sex: Male

DRUGS (5)
  1. MAGNEVIST [Suspect]
     Indication: NUCLEAR MAGNETIC RESONANCE IMAGING
     Dosage: 10 MMOL (0.1 MMOL/KG OF BODY WEIGHT)
  2. MAGNEVIST [Interacting]
     Dosage: 10 MMOL (0.1 MMOL/KG OF BODY WEIGHT)
  3. SUPER POLIGRIP [Interacting]
     Indication: DENTURE WEARER
     Dosage: 28-34 MG ZINC PER GRAM OF CREAM
     Route: 004
  4. CHELEX [Concomitant]
     Indication: HYPERZINCAEMIA
     Dosage: 3-5 CAPSULES PER DAY
  5. EDETATE DISODIUM [Concomitant]
     Indication: HYPERZINCAEMIA

REACTIONS (1)
  - NO ADVERSE EVENT [None]
